FAERS Safety Report 17451881 (Version 1)
Quarter: 2020Q1

REPORT INFORMATION
  Report Type: Spontaneous
  Country: FR (occurrence: FR)
  Receive Date: 20200224
  Receipt Date: 20200224
  Transmission Date: 20200409
  Serious: Yes (Hospitalization)
  Sender: FDA-Public Use
  Company Number: FR-PFIZER INC-2020075146

PATIENT
  Age: 21 Year
  Sex: Female
  Weight: 90 kg

DRUGS (6)
  1. LUTENYL [Concomitant]
     Active Substance: NOMEGESTROL ACETATE
     Dosage: UNK
  2. CABERGOLINE. [Suspect]
     Active Substance: CABERGOLINE
     Indication: HYPERPROLACTINAEMIA
     Dosage: 1 MG, WEEKLY
     Route: 048
     Dates: start: 201603
  3. PROVAMES [Concomitant]
     Active Substance: ESTRADIOL
     Dosage: UNK
  4. OXYCONTIN [Concomitant]
     Active Substance: OXYCODONE HYDROCHLORIDE
     Dosage: UNK
  5. RESITUNE [Concomitant]
     Active Substance: ASPIRIN
     Dosage: UNK
  6. GINKGO EXTRACT\HEPTAMINOL\TROXERUTIN [Concomitant]
     Active Substance: GINKGO\HEPTAMINOL\TROXERUTIN
     Dosage: UNK

REACTIONS (1)
  - Osteonecrosis [Recovered/Resolved]

NARRATIVE: CASE EVENT DATE: 2018
